FAERS Safety Report 12765854 (Version 4)
Quarter: 2017Q1

REPORT INFORMATION
  Report Type: Spontaneous
  Country: US (occurrence: US)
  Receive Date: 20160921
  Receipt Date: 20170313
  Transmission Date: 20170428
  Serious: Yes (Hospitalization)
  Sender: FDA-Public Use
  Company Number: US-JNJFOC-20160910742

PATIENT
  Sex: Female

DRUGS (1)
  1. XARELTO [Suspect]
     Active Substance: RIVAROXABAN
     Indication: DEEP VEIN THROMBOSIS
     Route: 048
     Dates: start: 201501, end: 201505

REACTIONS (3)
  - Cerebral haemorrhage [Recovering/Resolving]
  - Ischaemic stroke [Recovering/Resolving]
  - Fall [Unknown]

NARRATIVE: CASE EVENT DATE: 2015
